FAERS Safety Report 5342758-3 (Version None)
Quarter: 2007Q2

REPORT INFORMATION
  Report Type: 
  Country: None (occurrence: None)
  Receive Date: 20070601
  Receipt Date: 20070524
  Transmission Date: 20071010
  Serious: Yes (Hospitalization)
  Sender: FDA-Public Use
  Company Number: FR-ABBOTT-07P-056-0369507-00

PATIENT
  Sex: Female
  Weight: 68 kg

DRUGS (21)
  1. SEVORANE LIQUID FOR INHALATION [Suspect]
     Indication: ANAESTHESIA
     Route: 055
     Dates: start: 20070403, end: 20070403
  2. ISOFLURANE [Suspect]
     Indication: ANAESTHESIA
     Route: 055
     Dates: start: 20070322, end: 20070322
  3. PARACETAMOL [Suspect]
     Indication: DRUG USE FOR UNKNOWN INDICATION
     Route: 048
     Dates: start: 20070403, end: 20070403
  4. PARACETAMOL [Suspect]
     Route: 042
     Dates: start: 20070403, end: 20070403
  5. PARACETAMOL [Suspect]
     Dosage: 2-4 GRAMS
     Route: 048
     Dates: start: 20070403, end: 20070410
  6. PANTOPRAZOLE SODIUM [Suspect]
     Indication: DRUG USE FOR UNKNOWN INDICATION
     Route: 048
     Dates: start: 20070405, end: 20070410
  7. NEFOPAM [Suspect]
     Indication: DRUG USE FOR UNKNOWN INDICATION
     Route: 048
  8. HYDROXYZINE HYDROCHLORIDE [Suspect]
     Indication: DRUG USE FOR UNKNOWN INDICATION
     Route: 048
     Dates: start: 20070403, end: 20070412
  9. PROPOFOL [Concomitant]
     Indication: ANAESTHESIA
     Dates: start: 20070322, end: 20070322
  10. PROPOFOL [Concomitant]
     Dates: start: 20070403, end: 20070403
  11. MIDAZOLAM HCL [Concomitant]
     Indication: ANAESTHESIA
     Dates: start: 20070322, end: 20070322
  12. SUFENTANIL CITRATE [Concomitant]
     Indication: ANAESTHESIA
     Dates: start: 20070322, end: 20070322
  13. SUFENTANIL CITRATE [Concomitant]
     Dates: start: 20070403, end: 20070403
  14. ATRACURIUM BESYLATE [Concomitant]
     Indication: ANAESTHESIA
     Dates: start: 20070322, end: 20070322
  15. KETAMINE HCL [Concomitant]
     Indication: ANAESTHESIA
     Dates: start: 20070322, end: 20070322
  16. SODIUM ALGINATE [Concomitant]
     Indication: DRUG USE FOR UNKNOWN INDICATION
  17. ENOXAPARINE SODIC [Concomitant]
     Indication: DRUG USE FOR UNKNOWN INDICATION
  18. ETORICOXIB [Concomitant]
     Indication: RHEUMATOID ARTHRITIS
  19. ZOPICLONE [Concomitant]
     Indication: DRUG USE FOR UNKNOWN INDICATION
     Dates: start: 20070404, end: 20070412
  20. SODIUM BICARBONATE [Concomitant]
     Indication: DRUG USE FOR UNKNOWN INDICATION
  21. CALCIUM CARBONATE [Concomitant]
     Indication: DRUG USE FOR UNKNOWN INDICATION

REACTIONS (7)
  - ABDOMINAL PAIN UPPER [None]
  - ALANINE AMINOTRANSFERASE INCREASED [None]
  - ASPARTATE AMINOTRANSFERASE INCREASED [None]
  - BLOOD LACTATE DEHYDROGENASE INCREASED [None]
  - CYTOLYTIC HEPATITIS [None]
  - GAMMA-GLUTAMYLTRANSFERASE INCREASED [None]
  - VOMITING [None]
